FAERS Safety Report 8756872 (Version 1)
Quarter: 2012Q4

REPORT INFORMATION
  Report Type: 
  Country: GB (occurrence: GB)
  Receive Date: 20120828
  Receipt Date: 20120828
  Transmission Date: 20130627
  Serious: Yes (Life-Threatening)
  Sender: FDA-Public Use
  Company Number: GB-SANOFI-AVENTIS-2012SA059583

PATIENT
  Age: 40 Year
  Sex: Male
  Weight: 65 kg

DRUGS (8)
  1. LEFLUNOMIDE [Suspect]
     Indication: PSORIATIC ARTHRITIS
     Dosage: 20 units not specified
     Route: 065
     Dates: start: 20120325, end: 20120629
  2. AMOXICILLIN [Concomitant]
  3. PREDNISOLONE [Concomitant]
  4. TACROLIMUS [Concomitant]
  5. EXOREX [Concomitant]
  6. LOTRIDERM [Concomitant]
  7. CAPASAL [Concomitant]
  8. EPADERM [Concomitant]

REACTIONS (9)
  - Haemoglobin decreased [Unknown]
  - White blood cell count decreased [Unknown]
  - Multi-organ failure [Not Recovered/Not Resolved]
  - Stevens-Johnson syndrome [Not Recovered/Not Resolved]
  - Rash [Unknown]
  - Hepatic failure [Not Recovered/Not Resolved]
  - Blood albumin decreased [Unknown]
  - Alanine aminotransferase increased [Unknown]
  - Bone marrow toxicity [Not Recovered/Not Resolved]
